FAERS Safety Report 13068315 (Version 1)
Quarter: 2016Q4

REPORT INFORMATION
  Report Type: Spontaneous
  Country: JP (occurrence: JP)
  Receive Date: 20161228
  Receipt Date: 20161228
  Transmission Date: 20170207
  Serious: Yes (Hospitalization, Other)
  Sender: FDA-Public Use
  Company Number: JP-ASTRAZENECA-2016SF35120

PATIENT
  Age: 72 Year
  Sex: Female

DRUGS (10)
  1. REPATHA [Suspect]
     Active Substance: EVOLOCUMAB
     Indication: TYPE IIA HYPERLIPIDAEMIA
     Route: 058
     Dates: start: 20160930
  2. LANSOPRAZOL [Concomitant]
     Active Substance: LANSOPRAZOLE
  3. REPATHA [Suspect]
     Active Substance: EVOLOCUMAB
     Indication: TYPE IIA HYPERLIPIDAEMIA
     Route: 058
     Dates: start: 20160902, end: 20160905
  4. ZOPICLONE [Concomitant]
     Active Substance: ZOPICLONE
  5. NICORANDIL [Concomitant]
     Active Substance: NICORANDIL
  6. BAYASPIRIN [Concomitant]
     Active Substance: ASPIRIN
     Dosage: UNKNOWN
     Route: 065
     Dates: start: 20150122
  7. IRBETAN [Concomitant]
     Active Substance: IRBESARTAN
  8. ZETIA [Concomitant]
     Active Substance: EZETIMIBE
  9. CRESTOR [Suspect]
     Active Substance: ROSUVASTATIN CALCIUM
     Indication: TYPE IIA HYPERLIPIDAEMIA
     Dosage: 5 MG, DOSING UNKNOWN
     Route: 048
     Dates: start: 20160707, end: 20160906
  10. MAGMITT [Concomitant]
     Active Substance: MAGNESIUM OXIDE

REACTIONS (1)
  - Pyelonephritis acute [Recovered/Resolved]

NARRATIVE: CASE EVENT DATE: 20160905
